FAERS Safety Report 7090161-0 (Version None)
Quarter: 2010Q4

REPORT INFORMATION
  Report Type: 
  Country: None (occurrence: None)
  Receive Date: 20101109
  Receipt Date: 20100318
  Transmission Date: 20110411
  Serious: Yes (Hospitalization, Other)
  Sender: FDA-Public Use
  Company Number: US-ASTRAZENECA-2010SE22271

PATIENT
  Age: 485 Month
  Sex: Female

DRUGS (8)
  1. SEROQUEL [Suspect]
     Dosage: 100-200 MG AT NIGHT
     Route: 048
     Dates: start: 20050101
  2. SEROQUEL [Suspect]
     Dosage: 100-200 MG EVERY NIGHT
     Route: 048
     Dates: start: 20070528
  3. ZOLOFT [Concomitant]
     Dates: start: 20080101
  4. ZOLOFT [Concomitant]
     Dosage: 100 MG
     Dates: start: 20080529
  5. NEURONTIN [Concomitant]
     Dates: start: 20080808
  6. LISINOPRIL [Concomitant]
     Dates: start: 20080808
  7. NAPROXEN [Concomitant]
     Dates: start: 20080808
  8. ZOCOR [Concomitant]
     Dosage: 10 MG
     Dates: start: 20080701

REACTIONS (7)
  - BLOOD CHOLESTEROL [None]
  - CHEST PAIN [None]
  - DIABETES MELLITUS [None]
  - HYPERGLYCAEMIA [None]
  - HYPERLIPIDAEMIA [None]
  - METABOLIC SYNDROME [None]
  - NEUROPATHY PERIPHERAL [None]
